FAERS Safety Report 5467062-4 (Version None)
Quarter: 2007Q3

REPORT INFORMATION
  Report Type: 
  Country: None (occurrence: None)
  Receive Date: 20070925
  Receipt Date: 20070920
  Transmission Date: 20080115
  Serious: Yes (Hospitalization)
  Sender: FDA-Public Use
  Company Number: A0679509A

PATIENT
  Age: 50 Year
  Sex: Female

DRUGS (2)
  1. ALLI [Suspect]
     Route: 048
     Dates: start: 20070801
  2. MIRALAX [Concomitant]
     Route: 048

REACTIONS (9)
  - ABDOMINAL PAIN UPPER [None]
  - CHILLS [None]
  - COLITIS [None]
  - DIVERTICULITIS [None]
  - EATING DISORDER [None]
  - LARGE INTESTINAL ULCER [None]
  - NAUSEA [None]
  - PYREXIA [None]
  - TREMOR [None]
